FAERS Safety Report 18973358 (Version 2)
Quarter: 2021Q3

REPORT INFORMATION
  Report Type: Spontaneous
  Country: GB (occurrence: GB)
  Receive Date: 20210305
  Receipt Date: 20210810
  Transmission Date: 20211014
  Serious: Yes (Other)
  Sender: FDA-Public Use
  Company Number: GB-PFIZER INC-2021205128

PATIENT
  Age: 27 Year
  Sex: Female
  Weight: 66.67 kg

DRUGS (7)
  1. HYDROCORTISONE ACETATE. [Suspect]
     Active Substance: HYDROCORTISONE ACETATE
     Indication: ECZEMA
     Dosage: UNK (AS NEEDED)
     Route: 061
     Dates: start: 1992, end: 20180131
  2. DERMOVATE [Suspect]
     Active Substance: CLOBETASOL
     Indication: ECZEMA
     Dosage: ONCE OR TWICE A DAY FOR A COUPLE OF WEEKS
     Route: 061
     Dates: start: 2011, end: 20180131
  3. NAPROXEN. [Concomitant]
     Active Substance: NAPROXEN
     Indication: ILL-DEFINED DISORDER
     Dosage: UNK
  4. EUMOVATE [Suspect]
     Active Substance: CLOBETASONE BUTYRATE
     Indication: ECZEMA
     Dosage: UNK (AS NEEDED ON THE FACE)
     Route: 061
     Dates: start: 2010, end: 20180131
  5. ELOCON [Suspect]
     Active Substance: MOMETASONE FUROATE
     Indication: ECZEMA
     Dosage: AS NEEDED ON AFFECTED AREAS FOR A COUPLE OF WEEKS, SOMETIMES LONGER
     Route: 061
     Dates: start: 2010, end: 20180131
  6. BETNOVATE [Suspect]
     Active Substance: BETAMETHASONE
     Indication: ECZEMA
     Dosage: UNK (AS NEEDED ON AFFECTED AREAS)
     Route: 061
     Dates: start: 20090103, end: 20180131
  7. HYDROXYZINE HYDROCHLORIDE. [Concomitant]
     Active Substance: HYDROXYZINE HYDROCHLORIDE
     Indication: ILL-DEFINED DISORDER
     Dosage: UNK

REACTIONS (14)
  - Rash pruritic [Recovering/Resolving]
  - Pyrexia [Recovering/Resolving]
  - Skin wrinkling [Recovered/Resolved with Sequelae]
  - Skin infection [Recovered/Resolved with Sequelae]
  - Skin burning sensation [Recovering/Resolving]
  - Skin abrasion [Recovered/Resolved with Sequelae]
  - Alopecia [Recovered/Resolved with Sequelae]
  - Asthenia [Unknown]
  - Paraesthesia [Recovered/Resolved with Sequelae]
  - Medication error [Unknown]
  - Movement disorder [Unknown]
  - Weight decreased [Recovered/Resolved]
  - Skin swelling [Recovered/Resolved with Sequelae]
  - Skin exfoliation [Recovering/Resolving]

NARRATIVE: CASE EVENT DATE: 2010
